FAERS Safety Report 23757102 (Version 1)
Quarter: 2024Q2

REPORT INFORMATION
  Report Type: Spontaneous
  Country: US (occurrence: US)
  Receive Date: 20240418
  Receipt Date: 20240418
  Transmission Date: 20240716
  Serious: No
  Sender: FDA-Public Use
  Company Number: US-PFIZER INC-PV202400049772

PATIENT
  Age: 64 Year
  Sex: Female
  Weight: 51.71 kg

DRUGS (6)
  1. INLYTA [Suspect]
     Active Substance: AXITINIB
     Indication: Neoplasm malignant
     Dosage: TWO PILLS (1MG EACH) IN THE MORNING AND TWO IN THE EVENING SWALLOW THEM WITH LOTS OF WATER
     Dates: start: 202306
  2. INLYTA [Suspect]
     Active Substance: AXITINIB
     Dosage: 4 MG, DAILY
     Dates: start: 202306
  3. INLYTA [Suspect]
     Active Substance: AXITINIB
     Dosage: 6 MG
  4. INLYTA [Suspect]
     Active Substance: AXITINIB
     Dosage: 10 MG
     Dates: start: 202306
  5. KEYTRUDA [Suspect]
     Active Substance: PEMBROLIZUMAB
     Indication: Renal cell carcinoma
     Dosage: EVERY FOUR WEEKS
     Route: 042
     Dates: start: 202306
  6. OPDIVO [Suspect]
     Active Substance: NIVOLUMAB
     Indication: Renal cell carcinoma stage IV
     Dosage: 480 DOSE UNIT UNKNOWN, EVERY FOUR WEEKS
     Route: 041
     Dates: start: 202307

REACTIONS (3)
  - Hyperkeratosis [Recovering/Resolving]
  - Dry skin [Not Recovered/Not Resolved]
  - Blood pressure increased [Recovered/Resolved]

NARRATIVE: CASE EVENT DATE: 20230601
